FAERS Safety Report 9580055 (Version 4)
Quarter: 2014Q3

REPORT INFORMATION
  Report Type: Report from Study
  Country: US (occurrence: US)
  Receive Date: 20131002
  Receipt Date: 20140710
  Transmission Date: 20150326
  Serious: Yes (Hospitalization, Other)
  Sender: FDA-Public Use
  Company Number: US-ALEXION PHARMACEUTICALS INC.-A201302517

PATIENT

DRUGS (25)
  1. PRENATAL VITAMINS [Concomitant]
     Active Substance: VITAMINS
     Dosage: UNK
  2. BACTRIM [Concomitant]
     Active Substance: SULFAMETHOXAZOLE\TRIMETHOPRIM
     Dosage: UNK
  3. SPECTAZOLE [Concomitant]
     Active Substance: ECONAZOLE NITRATE
     Dosage: UNK
     Route: 061
  4. MELATONINUM [Concomitant]
     Dosage: UNK
  5. REMERON [Concomitant]
     Active Substance: MIRTAZAPINE
     Dosage: UNK
  6. OXYCODONE [Concomitant]
     Active Substance: OXYCODONE
     Dosage: UNK
  7. SOLIRIS [Suspect]
     Active Substance: ECULIZUMAB
     Indication: HAEMOLYTIC URAEMIC SYNDROME
     Dosage: 900 MG, SINGLE
     Route: 042
     Dates: start: 20130618, end: 20130618
  8. SOLIRIS [Suspect]
     Active Substance: ECULIZUMAB
     Dosage: 1200 MG, SINGLE
     Route: 042
     Dates: start: 20130715, end: 20130715
  9. VITAMIN D3 [Concomitant]
     Active Substance: CHOLECALCIFEROL
     Dosage: UNK
  10. PROCRIT [Concomitant]
     Active Substance: ERYTHROPOIETIN
     Dosage: UNK
  11. MYFORTIC [Concomitant]
     Active Substance: MYCOPHENOLATE SODIUM
     Dosage: UNK
  12. SOLIRIS [Suspect]
     Active Substance: ECULIZUMAB
     Dosage: 1200 MG, UNK
     Route: 042
     Dates: start: 20130923
  13. LASIX [Concomitant]
     Active Substance: FUROSEMIDE
     Dosage: UNK
  14. COZAAR [Concomitant]
     Active Substance: LOSARTAN POTASSIUM
     Dosage: UNK
  15. TRIAMCINOLONE [Concomitant]
     Active Substance: TRIAMCINOLONE
     Dosage: UNK
  16. VITAMIN B12 [Concomitant]
     Active Substance: CYANOCOBALAMIN
     Dosage: UNK
  17. DILAUDID [Concomitant]
     Active Substance: HYDROMORPHONE HYDROCHLORIDE
     Dosage: UNK
  18. SYNTHROID [Concomitant]
     Active Substance: LEVOTHYROXINE SODIUM
     Dosage: UNK
  19. PENICILLIN [Concomitant]
     Active Substance: PENICILLIN
     Dosage: UNK
  20. SOLIRIS [Suspect]
     Active Substance: ECULIZUMAB
     Dosage: 1200 MG, SINGLE
     Route: 042
     Dates: start: 20130728, end: 20130728
  21. SOLIRIS [Suspect]
     Active Substance: ECULIZUMAB
     Dosage: 1200 MG, SINGLE
     Route: 042
     Dates: start: 20130826, end: 20130826
  22. PROTONIX [Concomitant]
     Active Substance: PANTOPRAZOLE SODIUM
     Dosage: UNK
  23. SOLIRIS [Suspect]
     Active Substance: ECULIZUMAB
     Dosage: 1200 MG, SINGLE
     Route: 042
     Dates: start: 20130812, end: 20130812
  24. FERROUS SULFATE [Concomitant]
     Active Substance: FERROUS SULFATE\FERROUS SULFATE, DRIED
     Dosage: UNK
  25. VALCYTE [Concomitant]
     Active Substance: VALGANCICLOVIR HYDROCHLORIDE
     Dosage: UNK

REACTIONS (2)
  - Unevaluable event [Unknown]
  - Thrombosis [Not Recovered/Not Resolved]

NARRATIVE: CASE EVENT DATE: 20130807
